FAERS Safety Report 5939529-3 (Version None)
Quarter: 2008Q4

REPORT INFORMATION
  Report Type: 
  Country: None (occurrence: None)
  Receive Date: 20081030
  Receipt Date: 20081016
  Transmission Date: 20090506
  Serious: Yes (Other)
  Sender: FDA-Public Use
  Company Number: 230475K08USA

PATIENT
  Age: 68 Year
  Sex: Female

DRUGS (14)
  1. REBIF [Suspect]
     Indication: MULTIPLE SCLEROSIS
     Dosage: 44 MCG, 3 IN 1 WEEKS, SUBCUTANEOUS
     Route: 058
     Dates: start: 20050418
  2. EFFEXOR [Suspect]
     Indication: DEPRESSION
  3. ASPIRIN [Concomitant]
  4. COZAAR [Concomitant]
  5. LEXAPRO [Concomitant]
  6. ZOCOR [Concomitant]
  7. PREVACID [Concomitant]
  8. SYNTHROID [Concomitant]
  9. BACLOFEN [Concomitant]
  10. TRIAMTERENE (TRIAMTERENE) [Concomitant]
  11. FLAX OIL (LINUM USITATISSIMUM SEED OIL) [Concomitant]
  12. GARLIC (ALLIUM SATVUM) [Concomitant]
  13. CALCIUM WITH VITAMIN D (CALCIUM WITH VITAMIN D) [Concomitant]
  14. XANAX [Concomitant]

REACTIONS (7)
  - ANXIETY [None]
  - CEREBROVASCULAR ACCIDENT [None]
  - CHOKING [None]
  - CONDITION AGGRAVATED [None]
  - HEART RATE IRREGULAR [None]
  - INCREASED UPPER AIRWAY SECRETION [None]
  - SLEEP APNOEA SYNDROME [None]
